FAERS Safety Report 4917186-2 (Version None)
Quarter: 2006Q1

REPORT INFORMATION
  Report Type: 
  Country: None (occurrence: None)
  Receive Date: 20060216
  Receipt Date: 20060216
  Transmission Date: 20060701
  Serious: Yes (Hospitalization)
  Sender: FDA-Public Use
  Company Number: None

PATIENT
  Sex: Male
  Weight: 83.7 kg

DRUGS (9)
  1. CETUXIMAB (ERBITUX; MOAB: CC225 CHIMERIC MONOCLONAL ANTIBODY) (IMCLONE [Suspect]
     Indication: NEOPLASM MALIGNANT
     Dosage: 3300 MG
     Dates: end: 20060208
  2. TAXOTERE [Suspect]
     Dosage: 120 MG
     Dates: end: 20060201
  3. LISINOPRIL [Concomitant]
  4. NITROGLYCERIN [Concomitant]
  5. MAGNESIUM [Concomitant]
  6. OXYCONTIN [Concomitant]
  7. PERCOCET [Concomitant]
  8. TOPROL [Concomitant]
  9. ZETIA [Concomitant]

REACTIONS (11)
  - ASTHENIA [None]
  - DIZZINESS [None]
  - DRY MOUTH [None]
  - DYSPHAGIA [None]
  - FATIGUE [None]
  - HEART RATE INCREASED [None]
  - HYPOTENSION [None]
  - ORAL INTAKE REDUCED [None]
  - PHARYNGOLARYNGEAL PAIN [None]
  - RETCHING [None]
  - WEIGHT DECREASED [None]
